FAERS Safety Report 4607165-7 (Version None)
Quarter: 2005Q1

REPORT INFORMATION
  Report Type: 
  Country: None (occurrence: None)
  Receive Date: 20050311
  Receipt Date: 20050311
  Transmission Date: 20050727
  Serious: Yes (Hospitalization, Other)
  Sender: FDA-Public Use
  Company Number: None

PATIENT
  Age: 71 Year
  Sex: Female
  Weight: 95 kg

DRUGS (7)
  1. TEQUIN [Suspect]
     Dosage: 400MG IV DAILY
     Route: 042
     Dates: start: 20040531, end: 20040601
  2. TRIDIL [Concomitant]
  3. COREG [Concomitant]
  4. ASPIRIN [Concomitant]
  5. AMARYL [Concomitant]
  6. HUMULIN N [Concomitant]
  7. PLAVIX [Concomitant]

REACTIONS (1)
  - HYPOGLYCAEMIA [None]
